FAERS Safety Report 23483277 (Version 1)
Quarter: 2024Q1

REPORT INFORMATION
  Report Type: Spontaneous
  Country: US (occurrence: None)
  Receive Date: 20240203
  Receipt Date: 20240203
  Transmission Date: 20240410
  Serious: Yes (Disabling, Other)
  Sender: FDA-Public Use
  Company Number: None

PATIENT
  Age: 42 Year
  Sex: Female
  Weight: 79.38 kg

DRUGS (1)
  1. NEXPLANON [Suspect]
     Active Substance: ETONOGESTREL
     Dates: start: 20180115, end: 20240126

REACTIONS (14)
  - Headache [None]
  - Acne [None]
  - Heavy menstrual bleeding [None]
  - Dysmenorrhoea [None]
  - Back pain [None]
  - Abdominal pain upper [None]
  - Hormone level abnormal [None]
  - Insomnia [None]
  - Depression [None]
  - Fatigue [None]
  - Vaginal haemorrhage [None]
  - Mood swings [None]
  - Weight increased [None]
  - Breast pain [None]
